FAERS Safety Report 9799671 (Version 1)
Quarter: 2014Q1

REPORT INFORMATION
  Report Type: Spontaneous
  Country: US (occurrence: None)
  Receive Date: 20140103
  Receipt Date: 20140103
  Transmission Date: 20141002
  Serious: No
  Sender: FDA-Public Use
  Company Number: None

PATIENT
  Age: 85 Year
  Sex: Male

DRUGS (1)
  1. NEXAVAR 200 [Suspect]
     Dosage: 2 TAB
     Route: 048
     Dates: start: 20131217

REACTIONS (1)
  - Palmar-plantar erythrodysaesthesia syndrome [None]
